FAERS Safety Report 22074722 (Version 2)
Quarter: 2023Q2

REPORT INFORMATION
  Report Type: Spontaneous
  Country: JP (occurrence: JP)
  Receive Date: 20230308
  Receipt Date: 20230404
  Transmission Date: 20230721
  Serious: Yes (Hospitalization, Other)
  Sender: FDA-Public Use
  Company Number: JP-TAIHO-2023-001494

PATIENT
  Age: 69 Year
  Sex: Female
  Weight: 45 kg

DRUGS (2)
  1. ABRAXANE [Suspect]
     Active Substance: PACLITAXEL
     Indication: Pancreatic carcinoma metastatic
     Dosage: ON DAYS 1 AND 8 OF EACH 21-DAY CYCLE, 6 DOSING DAYS DAILY DOSE: 165 MILLIGRAM(S)
     Route: 041
     Dates: start: 20221125, end: 20230111
  2. GEMZAR [Suspect]
     Active Substance: GEMCITABINE HYDROCHLORIDE
     Indication: Pancreatic carcinoma metastatic
     Dosage: ON DAYS 1 AND 8 OF EACH 21-DAY CYCLE, 6 DOSING DAYS DAILY DOSE: 1300 MILLIGRAM(S)
     Route: 041
     Dates: start: 20221125, end: 20230111

REACTIONS (3)
  - Pulmonary toxicity [Recovered/Resolved]
  - Pulmonary embolism [Unknown]
  - Deep vein thrombosis [Unknown]

NARRATIVE: CASE EVENT DATE: 20230125
